FAERS Safety Report 15250832 (Version 1)
Quarter: 2018Q3

REPORT INFORMATION
  Report Type: Spontaneous
  Country: US (occurrence: US)
  Receive Date: 20180716
  Receipt Date: 20180716
  Transmission Date: 20181010
  Serious: No
  Sender: FDA-Public Use
  Company Number: None

PATIENT
  Age: 86 Year
  Sex: Male
  Weight: 63 kg

DRUGS (9)
  1. ESOMEPRAZOLE [Concomitant]
     Active Substance: ESOMEPRAZOLE
  2. CALCIUM 500 + D [Concomitant]
     Active Substance: CALCIUM\VITAMIN D
  3. CLOTRIMAZOLE?BETAMETHASON [Concomitant]
  4. ANORO ELLIPTA [Concomitant]
     Active Substance: UMECLIDINIUM BROMIDE\VILANTEROL TRIFENATATE
  5. TAMSULOSIN [Concomitant]
     Active Substance: TAMSULOSIN
  6. IMATINIB MESYLATE. [Suspect]
     Active Substance: IMATINIB MESYLATE
     Indication: GASTRIC CANCER
     Route: 048
     Dates: start: 20170925
  7. DILTIAZEM CD [Concomitant]
     Active Substance: DILTIAZEM
  8. LIDOCAINE. [Concomitant]
     Active Substance: LIDOCAINE
  9. VALSARTAN?HYDROCHLOROTHIAZIDE [Concomitant]
     Active Substance: HYDROCHLOROTHIAZIDE\VALSARTAN

REACTIONS (2)
  - Muscle spasms [None]
  - Dizziness [None]

NARRATIVE: CASE EVENT DATE: 20180716
